FAERS Safety Report 7361254-5 (Version None)
Quarter: 2011Q1

REPORT INFORMATION
  Report Type: 
  Country: None (occurrence: None)
  Receive Date: 20110318
  Receipt Date: 20110317
  Transmission Date: 20110831
  Serious: Yes (Death, Life-Threatening, Hospitalization)
  Sender: FDA-Public Use
  Company Number: SK-ELI_LILLY_AND_COMPANY-SK201103005463

PATIENT
  Sex: Male

DRUGS (4)
  1. ASPIRIN [Concomitant]
     Indication: ACUTE MYOCARDIAL INFARCTION
     Dates: start: 20110316
  2. HEPARIN [Concomitant]
     Indication: ACUTE MYOCARDIAL INFARCTION
     Dates: start: 20110316
  3. PRASUGREL HYDROCHLORIDE [Suspect]
     Indication: ACUTE MYOCARDIAL INFARCTION
     Dosage: 4 TABLETS OF 10MG ADMINISTERED ONCE
     Route: 048
     Dates: start: 20110316, end: 20110316
  4. NORADRENALINE [Concomitant]
     Indication: ACUTE MYOCARDIAL INFARCTION
     Dates: start: 20110316

REACTIONS (2)
  - CARDIAC ARREST [None]
  - DEATH [None]
